FAERS Safety Report 21195521 (Version 1)
Quarter: 2022Q3

REPORT INFORMATION
  Report Type: Spontaneous
  Country: US (occurrence: US)
  Receive Date: 20220810
  Receipt Date: 20220810
  Transmission Date: 20221027
  Serious: Yes (Hospitalization)
  Sender: FDA-Public Use
  Company Number: US-BRISTOL-MYERS SQUIBB COMPANY-2022-087093

PATIENT
  Age: 67 Year
  Sex: Male
  Weight: 131.09 kg

DRUGS (13)
  1. REVLIMID [Suspect]
     Active Substance: LENALIDOMIDE
     Indication: Plasma cell myeloma
     Dosage: QD X 28 DAYS
     Route: 048
     Dates: start: 20220712, end: 20220805
  2. REVLIMID [Suspect]
     Active Substance: LENALIDOMIDE
     Dosage: USE AS DIRECTED
     Route: 048
     Dates: start: 20220805
  3. CHLORTHALIDONE [Concomitant]
     Active Substance: CHLORTHALIDONE
     Route: 048
     Dates: start: 20220712
  4. HUMULIN R [Concomitant]
     Active Substance: INSULIN HUMAN
     Dosage: HUMULIN R U 500 KWIKPEN, 500IU/ML AS DIRECTED
     Route: 058
     Dates: start: 20220712
  5. AMLODIPINE BESYLATE [Concomitant]
     Active Substance: AMLODIPINE BESYLATE
     Route: 048
     Dates: start: 20220713
  6. METFORMIN HYDROCHLORIDE [Concomitant]
     Active Substance: METFORMIN HYDROCHLORIDE
     Dosage: 2 TABELTS ONCE A DAY
     Route: 048
     Dates: start: 20220713
  7. POTASSIUM CITRATE [Concomitant]
     Active Substance: POTASSIUM CITRATE
     Dosage: ER ORAL TABLETS EX
     Route: 048
     Dates: start: 20220713
  8. SODIUM BICARBONATE [Concomitant]
     Active Substance: SODIUM BICARBONATE
     Dosage: 650
     Route: 048
     Dates: start: 20220713
  9. ASPIRIN [Concomitant]
     Active Substance: ASPIRIN
     Route: 048
     Dates: start: 20220713
  10. VITAMIN B6 [Concomitant]
     Active Substance: PYRIDOXINE HYDROCHLORIDE
     Route: 048
     Dates: start: 20220713
  11. LORATADINE [Concomitant]
     Active Substance: LORATADINE
     Route: 048
     Dates: start: 20220713
  12. VITAMIN D3 [Concomitant]
     Active Substance: CHOLECALCIFEROL
     Route: 048
     Dates: start: 20220713
  13. VITAMIN B12 [Concomitant]
     Active Substance: CYANOCOBALAMIN
     Route: 048
     Dates: start: 20220713

REACTIONS (1)
  - Red blood cell count decreased [Unknown]
